FAERS Safety Report 23326519 (Version 1)
Quarter: 2023Q4

REPORT INFORMATION
  Report Type: Spontaneous
  Country: US (occurrence: US)
  Receive Date: 20231221
  Receipt Date: 20231221
  Transmission Date: 20240109
  Serious: Yes (Hospitalization)
  Sender: FDA-Public Use
  Company Number: US-GLAXOSMITHKLINE-US2023175249

PATIENT

DRUGS (1)
  1. BREO ELLIPTA [Suspect]
     Active Substance: FLUTICASONE FUROATE\VILANTEROL TRIFENATATE
     Indication: Bronchitis
     Dosage: 200/25 30 INHAL
     Dates: start: 2020

REACTIONS (2)
  - Dyspnoea [Recovering/Resolving]
  - Ulcer haemorrhage [Unknown]

NARRATIVE: CASE EVENT DATE: 20230601
